FAERS Safety Report 6454140-6 (Version None)
Quarter: 2009Q4

REPORT INFORMATION
  Report Type: 
  Country: None (occurrence: None)
  Receive Date: 20091124
  Receipt Date: 20080918
  Transmission Date: 20100525
  Serious: Yes (Other)
  Sender: FDA-Public Use
  Company Number: US-BAYER-200841160NA

PATIENT
  Age: 42 Year
  Sex: Female

DRUGS (1)
  1. BETASERON [Suspect]
     Indication: MULTIPLE SCLEROSIS
     Route: 058
     Dates: start: 20030312

REACTIONS (5)
  - FATIGUE [None]
  - FEELING COLD [None]
  - NAUSEA [None]
  - NERVE INJURY [None]
  - SOMNOLENCE [None]
